FAERS Safety Report 10011780 (Version 1)
Quarter: 2014Q1

REPORT INFORMATION
  Report Type: Spontaneous
  Country: US (occurrence: US)
  Receive Date: 20140314
  Receipt Date: 20140314
  Transmission Date: 20141002
  Serious: No
  Sender: FDA-Public Use
  Company Number: US-B.I. PHARMACEUTICALS,INC./RIDGEFIELD-2014-BI-10156BP

PATIENT
  Age: 60 Year
  Sex: Male
  Weight: 174 kg

DRUGS (7)
  1. PRADAXA [Suspect]
     Indication: ATRIAL FIBRILLATION
     Dosage: 300 MG
     Route: 048
     Dates: start: 201401
  2. METAFORMIN [Concomitant]
     Indication: DIABETES MELLITUS
     Dosage: 1500 MG
     Route: 048
  3. SPIRONOLACTONE [Concomitant]
     Indication: CARDIAC FAILURE CONGESTIVE
     Dosage: 50 MG
     Route: 048
  4. LOVASTATIN [Concomitant]
     Indication: BLOOD CHOLESTEROL INCREASED
     Dosage: 80 MG
     Route: 048
  5. QUINAPRIL [Concomitant]
     Indication: CARDIAC FAILURE CONGESTIVE
     Dosage: 40 MG
     Route: 048
  6. COREG [Concomitant]
     Dosage: 25 MG
     Route: 048
  7. ASPIRIN [Concomitant]
     Dosage: 81 MG
     Route: 048

REACTIONS (1)
  - Atrial fibrillation [Recovered/Resolved]
